FAERS Safety Report 23673326 (Version 1)
Quarter: 2024Q1

REPORT INFORMATION
  Report Type: Spontaneous
  Country: GB (occurrence: GB)
  Receive Date: 20240326
  Receipt Date: 20240326
  Transmission Date: 20240410
  Serious: Yes (Hospitalization, Other)
  Sender: FDA-Public Use
  Company Number: None

PATIENT
  Age: 44 Year
  Sex: Male
  Weight: 77 kg

DRUGS (5)
  1. ACETAMINOPHEN [Suspect]
     Active Substance: ACETAMINOPHEN
     Indication: Adverse drug reaction
     Dosage: 38 X PARACETAMOL TABLETS TAKEN; ;
     Route: 065
  2. MIRTAZAPINE [Concomitant]
     Active Substance: MIRTAZAPINE
     Indication: Depression
  3. OMEPRAZOLE [Concomitant]
     Active Substance: OMEPRAZOLE
  4. PROCYCLIDINE [Concomitant]
     Active Substance: PROCYCLIDINE
  5. PROMETHAZINE [Concomitant]
     Active Substance: PROMETHAZINE HYDROCHLORIDE

REACTIONS (1)
  - Intentional overdose [Recovered/Resolved]
